FAERS Safety Report 8474616-X (Version None)
Quarter: 2012Q2

REPORT INFORMATION
  Report Type: 
  Country: None (occurrence: None)
  Receive Date: 20120621
  Receipt Date: 20120612
  Transmission Date: 20120825
  Serious: Yes (Hospitalization)
  Sender: FDA-Public Use
  Company Number: 217797

PATIENT
  Age: 63 Year
  Sex: Male

DRUGS (5)
  1. INEGY (INEGY) [Concomitant]
  2. NAFTIDROFURYL (NAFTIDROFURYL) [Concomitant]
  3. INNOHEP [Suspect]
     Indication: PROPHYLAXIS
     Dosage: 3500 IU (1 IN 1 D),SUBCUTANEOUS
     Route: 058
     Dates: start: 20120301, end: 20120401
  4. COZAAR [Concomitant]
  5. KARDEGIC (ACETYLSALICYLATE LYSINE) [Concomitant]

REACTIONS (2)
  - PHLEBITIS [None]
  - INCORRECT DRUG ADMINISTRATION DURATION [None]
